FAERS Safety Report 10070641 (Version 1)
Quarter: 2014Q2

REPORT INFORMATION
  Report Type: Report from Study
  Country: US (occurrence: US)
  Receive Date: 20140410
  Receipt Date: 20140410
  Transmission Date: 20141212
  Serious: Yes (Other)
  Sender: FDA-Public Use
  Company Number: US-BRISTOL-MYERS SQUIBB COMPANY-20589461

PATIENT
  Age: 10 Year
  Sex: Male
  Weight: 2.56 kg

DRUGS (3)
  1. VIDEX [Suspect]
     Dosage: 1 COURSE
  2. RETROVIR [Suspect]
     Dosage: 1 COURSE
  3. VIRACEPT [Suspect]
     Dosage: 1 COURSE

REACTIONS (4)
  - Congenital hydronephrosis [Unknown]
  - Hypospadias [Unknown]
  - Foetal exposure during pregnancy [Unknown]
  - Hyponatraemia [Unknown]
